FAERS Safety Report 4350820-7 (Version None)
Quarter: 2004Q2

REPORT INFORMATION
  Report Type: 
  Country: None (occurrence: None)
  Receive Date: 20040427
  Receipt Date: 20040415
  Transmission Date: 20050107
  Serious: Yes (Other)
  Sender: FDA-Public Use
  Company Number: 205923

PATIENT
  Age: 49 Year
  Sex: Female
  Weight: 76.2 kg

DRUGS (1)
  1. XOLAIR [Suspect]
     Indication: ASTHMA
     Dosage: 1/MONTH
     Dates: start: 20031218, end: 20040330

REACTIONS (16)
  - APHASIA [None]
  - ASTHENIA [None]
  - CEREBROVASCULAR ACCIDENT [None]
  - COUGH [None]
  - FEELING ABNORMAL [None]
  - FLUSHING [None]
  - HAEMOPTYSIS [None]
  - HEADACHE [None]
  - MEMORY IMPAIRMENT [None]
  - MULTIPLE SCLEROSIS [None]
  - MUSCLE TWITCHING [None]
  - MUSCULAR DYSTROPHY [None]
  - OEDEMA PERIPHERAL [None]
  - OROPHARYNGEAL SWELLING [None]
  - SWOLLEN TONGUE [None]
  - TRANSIENT ISCHAEMIC ATTACK [None]
